FAERS Safety Report 7653963-5 (Version None)
Quarter: 2011Q3

REPORT INFORMATION
  Report Type: 
  Country: None (occurrence: None)
  Receive Date: 20110803
  Receipt Date: 20110728
  Transmission Date: 20111222
  Serious: Yes (Disabling, Other)
  Sender: FDA-Public Use
  Company Number: AU-PFIZER INC-2011136085

PATIENT
  Age: 43 Year
  Sex: Female
  Weight: 80 kg

DRUGS (6)
  1. LITHIUM [Suspect]
     Indication: BIPOLAR DISORDER
     Dosage: 1000 MG, 1X/DAY
     Route: 048
     Dates: start: 20040101
  2. ZIPRASIDONE HYDROCHLORIDE [Suspect]
     Dosage: 80 MG, 2X/DAY
     Route: 048
     Dates: start: 20110515, end: 20110530
  3. ZIPRASIDONE HYDROCHLORIDE [Suspect]
     Indication: BIPOLAR DISORDER
     Dosage: 20 MG, 2X/DAY
     Route: 048
  4. ZOLPIDEM [Concomitant]
     Indication: SLEEP DISORDER
     Dosage: 12.5 MG, 1X/DAY AT NIGHT
     Route: 048
     Dates: start: 20110101
  5. DIAZEPAM [Concomitant]
     Indication: ANXIETY
     Dosage: 5 MG, AS NEEDED MAXIMUM TWICE IN 24 HOURS
     Route: 048
     Dates: start: 20110101
  6. LEVOTHYROXINE SODIUM [Concomitant]
     Indication: HYPOTHYROIDISM
     Dosage: 200MCG DAILY FROM MONDAY TO SATURDAY
     Route: 048
     Dates: start: 20050101

REACTIONS (1)
  - ASTERIXIS [None]
